FAERS Safety Report 6731849-8 (Version None)
Quarter: 2010Q2

REPORT INFORMATION
  Report Type: 
  Country: None (occurrence: None)
  Receive Date: 20100519
  Receipt Date: 20100510
  Transmission Date: 20101027
  Serious: Yes (Other)
  Sender: FDA-Public Use
  Company Number: FR-PFIZER INC-2010048754

PATIENT
  Age: 79 Year
  Sex: Female

DRUGS (4)
  1. ZYVOXID [Suspect]
     Indication: PERIRECTAL ABSCESS
     Dosage: 600 MG, 2X/DAY
     Route: 042
     Dates: start: 20100324, end: 20100330
  2. METRONIDAZOLE ^BRAUN^ [Suspect]
     Dosage: 500 MG, 3X/DAY
     Route: 042
     Dates: start: 20100322, end: 20100410
  3. OFLOXACIN [Suspect]
     Dosage: 200 MG, 2X/DAY
     Route: 042
     Dates: start: 20100322, end: 20100328
  4. VANCOMYCIN [Suspect]
     Indication: PERIRECTAL ABSCESS
     Dosage: 2400 MG, 1X/DAY
     Route: 042
     Dates: start: 20100322, end: 20100324

REACTIONS (3)
  - ENCEPHALOPATHY [None]
  - MYOCLONUS [None]
  - SEROTONIN SYNDROME [None]
